FAERS Safety Report 20626860 (Version 1)
Quarter: 2022Q1

REPORT INFORMATION
  Report Type: Spontaneous
  Country: US (occurrence: None)
  Receive Date: 20220322
  Receipt Date: 20220322
  Transmission Date: 20220423
  Serious: Yes (Hospitalization)
  Sender: FDA-Public Use
  Company Number: None

PATIENT
  Age: 56 Year
  Sex: Female
  Weight: 54.4 kg

DRUGS (14)
  1. EVUSHELD [Suspect]
     Active Substance: CILGAVIMAB\TIXAGEVIMAB
     Indication: Renal transplant
     Dates: start: 20220310, end: 20220310
  2. TACROLIMUS [Concomitant]
     Active Substance: TACROLIMUS
     Dates: start: 20220225
  3. MYCOPHENOLATE MOFETIL [Concomitant]
     Active Substance: MYCOPHENOLATE MOFETIL
     Dates: start: 20220225
  4. PREDNISONE [Concomitant]
     Active Substance: PREDNISONE
     Dates: start: 20220225
  5. PATIROMER [Concomitant]
     Active Substance: PATIROMER
     Dates: start: 20220307
  6. SENNA [Concomitant]
     Active Substance: SENNA LEAF\SENNOSIDES\SENNOSIDES A AND B
     Dates: start: 20220302
  7. INSULIN NOS [Concomitant]
     Active Substance: INSULIN NOS
     Dates: start: 20220301
  8. VERAPAMIL [Concomitant]
     Active Substance: VERAPAMIL HYDROCHLORIDE
     Dates: start: 20220301
  9. CLONIDINE [Concomitant]
     Active Substance: CLONIDINE
     Dates: start: 20220301
  10. LINACLOTIDE [Concomitant]
     Active Substance: LINACLOTIDE
     Dates: start: 20220301
  11. ONDANSETRON [Concomitant]
     Active Substance: ONDANSETRON
     Dates: start: 20220301
  12. PANTOPRAZOLE [Concomitant]
     Active Substance: PANTOPRAZOLE
     Dates: start: 20220301
  13. VALGANCICLOVIR [Concomitant]
     Active Substance: VALGANCICLOVIR
     Dates: start: 20220225
  14. NIFEDIPINE [Concomitant]
     Active Substance: NIFEDIPINE
     Dates: start: 20220301

REACTIONS (2)
  - Cerebral haemorrhage [None]
  - Subdural haematoma [None]

NARRATIVE: CASE EVENT DATE: 20220312
